FAERS Safety Report 8511939-X (Version None)
Quarter: 2012Q3

REPORT INFORMATION
  Report Type: 
  Country: None (occurrence: None)
  Receive Date: 20120711
  Receipt Date: 20120711
  Transmission Date: 20120928
  Serious: Yes (Other)
  Sender: FDA-Public Use
  Company Number: None

PATIENT
  Age: 70 Year
  Sex: Female
  Weight: 49.8957 kg

DRUGS (4)
  1. BENADRYL [Suspect]
     Indication: ANGIOEDEMA
     Dosage: 1-2 4/DAY PO
     Route: 048
  2. BENADRYL [Suspect]
     Indication: URTICARIA
     Dosage: 1-2 4/DAY PO
     Route: 048
  3. PEPTO BISMOL TABLET [Suspect]
     Indication: ANGIOEDEMA
     Dosage: 1 4/DAY PO
     Route: 048
  4. PEPTO BISMOL TABLET [Suspect]
     Indication: URTICARIA
     Dosage: 1 4/DAY PO
     Route: 048

REACTIONS (2)
  - URTICARIA [None]
  - ANGIOEDEMA [None]
